FAERS Safety Report 26085588 (Version 2)
Quarter: 2025Q4

REPORT INFORMATION
  Report Type: Spontaneous
  Country: EU (occurrence: EU)
  Receive Date: 20251125
  Receipt Date: 20251212
  Transmission Date: 20260119
  Serious: Yes (Life-Threatening, Hospitalization)
  Sender: TEVA
  Company Number: None

PATIENT
  Age: 59 Year
  Sex: Female
  Weight: 50.6 kg

DRUGS (4)
  1. FLUDARABINE [Suspect]
     Active Substance: FLUDARABINE PHOSPHATE
     Indication: Chronic lymphocytic leukaemia
     Dosage: INJECTION/INFUSION / BRAND NAME NOT SPECIFIED
     Route: 065
     Dates: start: 20250919, end: 20251005
  2. DEXAMETHASONE [Concomitant]
     Active Substance: DEXAMETHASONE
     Indication: Product used for unknown indication
     Dosage: BRAND NAME NOT SPECIFIED
     Route: 048
  3. CYCLOPHOSPHAMIDE [Concomitant]
     Active Substance: CYCLOPHOSPHAMIDE
     Indication: Product used for unknown indication
     Dosage: INJECTION/INFUSION / BRAND NAME NOT SPECIFIED
     Route: 065
     Dates: start: 20250919
  4. RITUXIMAB [Concomitant]
     Active Substance: RITUXIMAB
     Indication: Product used for unknown indication
     Dosage: INFUUS / BRAND NAME NOT SPECIFIED
     Route: 065
     Dates: start: 20250919

REACTIONS (1)
  - Haemophagocytic lymphohistiocytosis [Recovering/Resolving]
